FAERS Safety Report 13402564 (Version 3)
Quarter: 2017Q2

REPORT INFORMATION
  Report Type: Spontaneous
  Country: IT (occurrence: IT)
  Receive Date: 20170404
  Receipt Date: 20170428
  Transmission Date: 20170830
  Serious: Yes (Life-Threatening, Hospitalization, Other)
  Sender: FDA-Public Use
  Company Number: IT-BRISTOL-MYERS SQUIBB COMPANY-BMS-2017-027047

PATIENT
  Age: 74 Year
  Sex: Male

DRUGS (1)
  1. APIXABAN [Suspect]
     Active Substance: APIXABAN
     Indication: PRODUCT USED FOR UNKNOWN INDICATION
     Dosage: 5 MG, QD
     Route: 065
     Dates: start: 20160815, end: 20170306

REACTIONS (4)
  - Full blood count decreased [Unknown]
  - Transfusion [Unknown]
  - Shock haemorrhagic [Recovering/Resolving]
  - Duodenal ulcer haemorrhage [Recovering/Resolving]

NARRATIVE: CASE EVENT DATE: 20170306
